FAERS Safety Report 6159093-6 (Version None)
Quarter: 2009Q2

REPORT INFORMATION
  Report Type: 
  Country: None (occurrence: None)
  Receive Date: 20090417
  Receipt Date: 20090415
  Transmission Date: 20091009
  Serious: Yes (Life-Threatening, Hospitalization, Other)
  Sender: FDA-Public Use
  Company Number: PHHO2007FR17751

PATIENT
  Sex: Female

DRUGS (3)
  1. CGS 20267 T30748+ [Suspect]
     Indication: BREAST CANCER
     Dosage: 2.5 MG, QD
     Route: 048
     Dates: start: 20030213
  2. TAMOXIFEN CITRATE [Suspect]
     Dosage: 20 MG, QD
     Dates: end: 20070918
  3. COZAAR [Concomitant]
     Indication: HYPERTENSION

REACTIONS (20)
  - ABDOMINAL PAIN [None]
  - ABDOMINAL PAIN UPPER [None]
  - ANAEMIA [None]
  - COLECTOMY [None]
  - COLON CANCER [None]
  - COLONIC POLYP [None]
  - COUGH [None]
  - DYSPEPSIA [None]
  - DYSPNOEA [None]
  - EMBOLISM [None]
  - EROSIVE OESOPHAGITIS [None]
  - GASTROOESOPHAGEAL REFLUX DISEASE [None]
  - GENERAL PHYSICAL HEALTH DETERIORATION [None]
  - LYMPHANGIECTASIA [None]
  - PHLEBITIS [None]
  - PULMONARY EMBOLISM [None]
  - SERUM FERRITIN DECREASED [None]
  - SKIN INDURATION [None]
  - TACHYCARDIA [None]
  - WEIGHT DECREASED [None]
